FAERS Safety Report 22607977 (Version 1)
Quarter: 2023Q2

REPORT INFORMATION
  Report Type: Other
  Country: KR (occurrence: KR)
  Receive Date: 20230616
  Receipt Date: 20230616
  Transmission Date: 20230722
  Serious: Yes (Death, Hospitalization, Other)
  Sender: FDA-Public Use
  Company Number: KR-CHUGAI-2023020719

PATIENT
  Age: 8 Year
  Sex: Male

DRUGS (1)
  1. ACTEMRA [Suspect]
     Active Substance: TOCILIZUMAB
     Indication: Cytokine release syndrome
     Dosage: 8 MILLIGRAM/KILOGRAM
     Route: 065

REACTIONS (7)
  - Pulmonary haemorrhage [Fatal]
  - Pulmonary oedema [Unknown]
  - Haemophagocytic lymphohistiocytosis [Unknown]
  - Dyspnoea [Unknown]
  - Haemoptysis [Unknown]
  - Hypoxia [Unknown]
  - Cytokine release syndrome [Unknown]
